FAERS Safety Report 21494567 (Version 2)
Quarter: 2022Q4

REPORT INFORMATION
  Report Type: Report from Study
  Country: ES (occurrence: ES)
  Receive Date: 20221021
  Receipt Date: 20221107
  Transmission Date: 20230113
  Serious: Yes (Other)
  Sender: FDA-Public Use
  Company Number: ES-KARYOPHARM-2022KPT001244

PATIENT
  Age: 64 Year
  Sex: Female
  Weight: 69 kg

DRUGS (10)
  1. SELINEXOR [Suspect]
     Active Substance: SELINEXOR
     Indication: Neurofibrosarcoma
     Dosage: 80 MG, WEEKLY
     Route: 048
     Dates: start: 20220809, end: 20221013
  2. GEMZAR [Suspect]
     Active Substance: GEMCITABINE HYDROCHLORIDE
     Indication: Neurofibrosarcoma
     Dosage: 2100 MG
     Route: 042
     Dates: start: 20220809, end: 20221013
  3. ALPRAZOLAM [Concomitant]
     Active Substance: ALPRAZOLAM
     Dosage: UNK
     Dates: start: 2018
  4. AMIODARONE [Concomitant]
     Active Substance: AMIODARONE
     Dosage: 200 MG
     Dates: start: 202107
  5. PITAVASTATIN [Concomitant]
     Active Substance: PITAVASTATIN
     Dosage: 2 MG
     Dates: start: 2019
  6. PRIMPERAN [Concomitant]
     Active Substance: METOCLOPRAMIDE HYDROCHLORIDE
     Dosage: 10 MG
     Dates: start: 20220914
  7. FERBISOL [Concomitant]
     Dosage: 100 MG
     Dates: start: 20220924
  8. MOVICOL [Concomitant]
     Active Substance: POLYETHYLENE GLYCOL 3350\POTASSIUM CHLORIDE\SODIUM BICARBONATE\SODIUM CHLORIDE
     Dosage: UNK
     Dates: start: 20220924
  9. APIXABAN [Concomitant]
     Active Substance: APIXABAN
     Dosage: 5 MG, BID
  10. METAMIZOL [Concomitant]
     Active Substance: METAMIZOLE SODIUM
     Dosage: 575 MG, TID

REACTIONS (1)
  - Tremor [Recovering/Resolving]

NARRATIVE: CASE EVENT DATE: 20221008
